FAERS Safety Report 16136400 (Version 1)
Quarter: 2019Q1

REPORT INFORMATION
  Report Type: Spontaneous
  Country: CA (occurrence: CA)
  Receive Date: 20190329
  Receipt Date: 20190329
  Transmission Date: 20190418
  Serious: Yes (Hospitalization, Other)
  Sender: FDA-Public Use
  Company Number: CA-SHIRE-CA201732800

PATIENT

DRUGS (2)
  1. INTUNIV [Suspect]
     Active Substance: GUANFACINE HYDROCHLORIDE
     Dosage: 9 MILLIGRAM, 1X/DAY:QD
     Route: 065
  2. INTUNIV [Suspect]
     Active Substance: GUANFACINE HYDROCHLORIDE
     Indication: PRODUCT USED FOR UNKNOWN INDICATION
     Dosage: 3 MG, 1X/DAY:QD
     Route: 065

REACTIONS (6)
  - Bradycardia [Unknown]
  - Hypotension [Unknown]
  - Lethargy [Unknown]
  - Accidental overdose [Unknown]
  - Headache [Unknown]
  - Vomiting [Unknown]
